FAERS Safety Report 26071998 (Version 1)
Quarter: 2025Q4

REPORT INFORMATION
  Report Type: Spontaneous
  Country: US (occurrence: US)
  Receive Date: 20251120
  Receipt Date: 20251120
  Transmission Date: 20260117
  Serious: Yes (Hospitalization, Other)
  Sender: NOVO NORDISK
  Company Number: US-NOVOPROD-1566554

PATIENT
  Age: 67 Year
  Sex: Female

DRUGS (5)
  1. LEVEMIR [Suspect]
     Active Substance: INSULIN DETEMIR
     Indication: Type 2 diabetes mellitus
  2. LEVEMIR [Suspect]
     Active Substance: INSULIN DETEMIR
     Indication: Blood cholesterol decreased
     Dosage: 18 IU, QD
     Route: 058
     Dates: start: 2005
  3. METFORMIN [Concomitant]
     Active Substance: METFORMIN HYDROCHLORIDE
     Indication: Product used for unknown indication
     Dosage: UNK
  4. TIMOLOL [Concomitant]
     Active Substance: TIMOLOL
     Indication: Lacrimation increased
     Dosage: UNK
  5. LATANOPROST [Concomitant]
     Active Substance: LATANOPROST
     Indication: Eye disorder
     Dosage: UNK

REACTIONS (15)
  - Cataract [Unknown]
  - Glaucoma [Unknown]
  - Fall [Unknown]
  - Head injury [Unknown]
  - Craniofacial fracture [Unknown]
  - Loss of consciousness [Unknown]
  - Craniofacial fracture [Unknown]
  - Fall [Unknown]
  - Arterial occlusive disease [Unknown]
  - Hypertension [Unknown]
  - Illness [Unknown]
  - Visual impairment [Not Recovered/Not Resolved]
  - Osteopenia [Unknown]
  - Blood cholesterol increased [Unknown]
  - Product storage error [Unknown]

NARRATIVE: CASE EVENT DATE: 20050301
